FAERS Safety Report 7145024-9 (Version None)
Quarter: 2010Q4

REPORT INFORMATION
  Report Type: 
  Country: None (occurrence: None)
  Receive Date: 20101208
  Receipt Date: 20101130
  Transmission Date: 20110411
  Serious: Yes (Hospitalization)
  Sender: FDA-Public Use
  Company Number: US-JNJFOC-20101003270

PATIENT
  Sex: Male
  Weight: 69.85 kg

DRUGS (6)
  1. TYLENOL W/ CODEINE NO. 3 [Suspect]
     Indication: ILL-DEFINED DISORDER
     Route: 048
  2. FLOLAN [Suspect]
     Indication: PULMONARY ARTERIAL HYPERTENSION
     Route: 050
  3. FLOLAN [Suspect]
     Dosage: 16NG/KG/MIN, 30,000NG/ML CONCENTRATION, PUMP RATE 54ML/DAY
     Route: 050
  4. ASPIRIN [Concomitant]
     Route: 065
  5. ACETAMINOPHEN [Concomitant]
     Route: 065
  6. SIMVASTATIN [Concomitant]
     Route: 065

REACTIONS (7)
  - ABDOMINAL PAIN [None]
  - BACK PAIN [None]
  - BLOOD CREATININE INCREASED [None]
  - BLOOD UREA INCREASED [None]
  - CONSTIPATION [None]
  - DEHYDRATION [None]
  - PAIN IN EXTREMITY [None]
